FAERS Safety Report 10873076 (Version 1)
Quarter: 2015Q1

REPORT INFORMATION
  Report Type: Spontaneous
  Country: US (occurrence: US)
  Receive Date: 20150227
  Receipt Date: 20150227
  Transmission Date: 20150721
  Serious: No
  Sender: FDA-Public Use
  Company Number: US-BIOGENIDEC-2015BI017299

PATIENT
  Age: 54 Year
  Sex: Female

DRUGS (2)
  1. TECFIDERA [Suspect]
     Active Substance: DIMETHYL FUMARATE
     Indication: MULTIPLE SCLEROSIS
     Route: 048
     Dates: start: 201402, end: 201402
  2. TECFIDERA [Suspect]
     Active Substance: DIMETHYL FUMARATE
     Indication: MULTIPLE SCLEROSIS
     Route: 048
     Dates: start: 201402

REACTIONS (6)
  - Muscular weakness [Not Recovered/Not Resolved]
  - Clumsiness [Not Recovered/Not Resolved]
  - Hemiparesis [Not Recovered/Not Resolved]
  - Upper respiratory tract infection [Recovered/Resolved]
  - Balance disorder [Not Recovered/Not Resolved]
  - Laryngitis [Recovered/Resolved]

NARRATIVE: CASE EVENT DATE: 201412
